FAERS Safety Report 5354055-0 (Version None)
Quarter: 2007Q2

REPORT INFORMATION
  Report Type: 
  Country: None (occurrence: None)
  Receive Date: 20070612
  Receipt Date: 20070607
  Transmission Date: 20071010
  Serious: Yes (Hospitalization)
  Sender: FDA-Public Use
  Company Number: A0654627A

PATIENT
  Age: 92 Year
  Sex: Male

DRUGS (6)
  1. AVANDARYL [Suspect]
     Route: 048
  2. METFORMIN HCL [Concomitant]
  3. LISINOPRIL [Concomitant]
  4. TOPROL-XL [Concomitant]
  5. ISOSORBIDE DINITRATE [Concomitant]
  6. NITROGLYCERIN [Concomitant]

REACTIONS (2)
  - CHEST PAIN [None]
  - MYOCARDIAL INFARCTION [None]
